FAERS Safety Report 5190922-9 (Version None)
Quarter: 2006Q4

REPORT INFORMATION
  Report Type: 
  Country: None (occurrence: None)
  Receive Date: 20061222
  Receipt Date: 20061213
  Transmission Date: 20070319
  Serious: Yes (Hospitalization)
  Sender: FDA-Public Use
  Company Number: BW-ABBOTT-06P-163-0353343-00

PATIENT
  Age: 31 Year
  Sex: Female

DRUGS (2)
  1. KALETRA [Suspect]
     Indication: HIV INFECTION
     Route: 048
     Dates: start: 20060913
  2. ABACAVIR/ZIDOVUDINE/LAMIVUDINE [Concomitant]
     Indication: HIV INFECTION
     Dates: start: 20060913

REACTIONS (4)
  - DRUG EXPOSURE DURING PREGNANCY [None]
  - FOETAL MOVEMENTS DECREASED [None]
  - OLIGOHYDRAMNIOS [None]
  - PRE-ECLAMPSIA [None]
